FAERS Safety Report 8393523-4 (Version None)
Quarter: 2012Q2

REPORT INFORMATION
  Report Type: 
  Country: None (occurrence: None)
  Receive Date: 20120529
  Receipt Date: 20120516
  Transmission Date: 20120825
  Serious: Yes (Life-Threatening, Hospitalization)
  Sender: FDA-Public Use
  Company Number: GB-MYLANLABS-2012S1010012

PATIENT
  Age: 50 Year
  Sex: Female

DRUGS (7)
  1. CLOMIPRAMINE HCL [Suspect]
     Indication: PRODUCT USED FOR UNKNOWN INDICATION
  2. MEFENAMIC ACID [Suspect]
     Indication: PRODUCT USED FOR UNKNOWN INDICATION
  3. LEVOTHYROXINE SODIUM [Concomitant]
     Indication: PRODUCT USED FOR UNKNOWN INDICATION
  4. LITHIUM CARBONATE [Suspect]
     Indication: PRODUCT USED FOR UNKNOWN INDICATION
  5. BACLOFEN [Concomitant]
     Indication: PRODUCT USED FOR UNKNOWN INDICATION
  6. OMEPRAZOLE [Concomitant]
     Indication: PRODUCT USED FOR UNKNOWN INDICATION
  7. QUETIAPINE [Suspect]
     Indication: PRODUCT USED FOR UNKNOWN INDICATION

REACTIONS (5)
  - RHABDOMYOLYSIS [None]
  - NEUROLEPTIC MALIGNANT SYNDROME [None]
  - NEPHROGENIC DIABETES INSIPIDUS [None]
  - RENAL FAILURE ACUTE [None]
  - TOXICITY TO VARIOUS AGENTS [None]
